FAERS Safety Report 23386108 (Version 11)
Quarter: 2024Q4

REPORT INFORMATION
  Report Type: Report from Study
  Country: CA (occurrence: CA)
  Receive Date: 20240110
  Receipt Date: 20241106
  Transmission Date: 20250115
  Serious: Yes (Other)
  Sender: JOHNSON AND JOHNSON
  Company Number: CA-JNJFOC-20231141483

PATIENT
  Age: 45 Year
  Sex: Female
  Weight: 73 kg

DRUGS (6)
  1. SIMPONI [Suspect]
     Active Substance: GOLIMUMAB
     Indication: Psoriatic arthropathy
     Route: 041
     Dates: start: 20230529
  2. SIMPONI [Suspect]
     Active Substance: GOLIMUMAB
     Route: 041
     Dates: start: 20230529
  3. SIMPONI [Suspect]
     Active Substance: GOLIMUMAB
     Route: 041
  4. SIMPONI [Suspect]
     Active Substance: GOLIMUMAB
     Dosage: 50 MG / 4 (ML MILLILITRE(S) )
     Route: 041
     Dates: start: 20230529
  5. SIMPONI [Suspect]
     Active Substance: GOLIMUMAB
     Route: 041
     Dates: start: 20230612
  6. SIMPONI [Suspect]
     Active Substance: GOLIMUMAB
     Dosage: NUMBER OF UNITS INVOLVED IN THIS COMPLAINT: 3
     Route: 041
     Dates: start: 20230529

REACTIONS (12)
  - Uveitis [Not Recovered/Not Resolved]
  - Psoriatic arthropathy [Not Recovered/Not Resolved]
  - Sinusitis [Not Recovered/Not Resolved]
  - Muscle enzyme increased [Unknown]
  - Blood calcium increased [Unknown]
  - Blood phosphorus increased [Unknown]
  - Dacryostenosis acquired [Recovered/Resolved]
  - Conjunctivitis viral [Recovered/Resolved]
  - Hot flush [Recovered/Resolved]
  - Headache [Recovered/Resolved]
  - Nasal congestion [Recovered/Resolved]
  - Therapeutic response decreased [Unknown]

NARRATIVE: CASE EVENT DATE: 20231101
